FAERS Safety Report 13569314 (Version 1)
Quarter: 2017Q2

REPORT INFORMATION
  Report Type: Spontaneous
  Country: SA (occurrence: SA)
  Receive Date: 20170522
  Receipt Date: 20170522
  Transmission Date: 20170830
  Serious: Yes (Hospitalization)
  Sender: FDA-Public Use
  Company Number: SA-BAYER-2017-091217

PATIENT
  Age: 49 Year
  Sex: Female

DRUGS (2)
  1. STIVARGA [Suspect]
     Active Substance: REGORAFENIB
     Indication: COLORECTAL CANCER METASTATIC
     Dosage: FULL DOSE
     Dates: start: 2015
  2. STIVARGA [Suspect]
     Active Substance: REGORAFENIB
     Indication: COLORECTAL CANCER METASTATIC
     Dosage: DAILY DOSE 80 MG
     Dates: start: 2016

REACTIONS (5)
  - Off label use [None]
  - Hepatotoxicity [None]
  - Hepatic enzyme increased [None]
  - Hepatic encephalopathy [None]
  - Blood bilirubin increased [None]

NARRATIVE: CASE EVENT DATE: 2016
